FAERS Safety Report 12185531 (Version 3)
Quarter: 2016Q1

REPORT INFORMATION
  Report Type: Report from Study
  Country: JP (occurrence: JP)
  Receive Date: 20160316
  Receipt Date: 20160331
  Transmission Date: 20160526
  Serious: Yes (Hospitalization)
  Sender: FDA-Public Use
  Company Number: JP-ASTRAZENECA-2016SE27359

PATIENT
  Age: 73 Year
  Sex: Female
  Weight: 48 kg

DRUGS (10)
  1. TAGRISSO [Suspect]
     Active Substance: OSIMERTINIB
     Indication: NON-SMALL CELL LUNG CANCER METASTATIC
     Route: 048
     Dates: start: 20160209, end: 20160308
  2. CARVEDILOL. [Suspect]
     Active Substance: CARVEDILOL
     Route: 048
  3. WARFARIN POTASSIUM [Concomitant]
     Active Substance: WARFARIN POTASSIUM
     Route: 048
  4. WARFARIN POTASSIUM [Concomitant]
     Active Substance: WARFARIN POTASSIUM
     Route: 048
     Dates: start: 20160209, end: 20160224
  5. HUMAN SERUM ALBUMIN [Suspect]
     Active Substance: ALBUMIN (HUMAN)
     Route: 042
     Dates: start: 20160303, end: 20160304
  6. WARFARIN POTASSIUM [Concomitant]
     Active Substance: WARFARIN POTASSIUM
     Route: 048
     Dates: start: 20160225
  7. METILDIGOXIN [Concomitant]
     Active Substance: METILDIGOXIN
     Route: 048
     Dates: start: 1996
  8. ALUMINIUM GLYCINATE [Concomitant]
     Route: 048
     Dates: start: 1995
  9. ROSUVASTATIN CALCIUM. [Concomitant]
     Active Substance: ROSUVASTATIN CALCIUM
     Route: 048
     Dates: start: 1995
  10. OLMESARTAN MEDOXOMIL. [Concomitant]
     Active Substance: OLMESARTAN MEDOXOMIL
     Route: 048
     Dates: start: 20151218

REACTIONS (2)
  - Cardiac failure chronic [Recovered/Resolved]
  - Electrocardiogram QT prolonged [Recovered/Resolved]

NARRATIVE: CASE EVENT DATE: 20160301
